FAERS Safety Report 8594158-0 (Version None)
Quarter: 2012Q3

REPORT INFORMATION
  Report Type: 
  Country: None (occurrence: None)
  Receive Date: 20120814
  Receipt Date: 20120807
  Transmission Date: 20120928
  Serious: Yes (Other)
  Sender: FDA-Public Use
  Company Number: JP-009507513-1104USA00600

PATIENT

DRUGS (12)
  1. TOLEDOMIN [Concomitant]
     Indication: DEPRESSION
     Dosage: 25 MG, QD
     Route: 048
     Dates: start: 20100216, end: 20101103
  2. MYCOBUTIN [Interacting]
     Dosage: 150 MG, QD
     Route: 048
  3. ISONIAZID [Concomitant]
     Indication: TUBERCULOSIS
     Dosage: 300 MG, QD
     Route: 048
     Dates: start: 20100303, end: 20101103
  4. EBUTOL [Concomitant]
     Indication: TUBERCULOSIS
     Dosage: 750 MG, QD
     Route: 048
     Dates: start: 20100303, end: 20101103
  5. TRUVADA [Concomitant]
     Indication: HIV INFECTION
     Dosage: 1 DF, QD
     Route: 048
     Dates: start: 20100225
  6. PYRAZINAMIDE [Concomitant]
     Indication: TUBERCULOSIS
     Dosage: 1.2 G, QD
     Route: 048
     Dates: start: 20100303, end: 20101103
  7. ISENTRESS [Suspect]
     Indication: HIV INFECTION
     Dosage: 400 MG, BID
     Route: 048
     Dates: start: 20100225, end: 20100518
  8. MYCOBUTIN [Interacting]
     Indication: TUBERCULOSIS
     Dosage: 300 MG, QD
     Route: 048
     Dates: start: 20100303, end: 20101103
  9. LENDORMIN [Concomitant]
     Indication: INSOMNIA
     Dosage: 0.25 MG, QD
     Route: 048
     Dates: start: 20100122, end: 20100622
  10. SULFAMETHOXAZOLE AND TRIMETHOPRIM [Concomitant]
     Indication: ANTIFUNGAL PROPHYLAXIS
     Dosage: 1 DF, QD
     Route: 048
     Dates: start: 20100210, end: 20100622
  11. PYDOXAL [Concomitant]
     Indication: VITAMIN SUPPLEMENTATION
     Dosage: 20 MG, QD
     Route: 048
     Dates: start: 20100303, end: 20101103
  12. RETROVIR [Interacting]
     Indication: HIV INFECTION
     Dosage: 400 MG, QD
     Route: 048
     Dates: start: 20110519, end: 20110622

REACTIONS (6)
  - IRRITABILITY [None]
  - DRUG INTERACTION [None]
  - ANXIETY [None]
  - PATHOGEN RESISTANCE [None]
  - ANAEMIA [None]
  - HALLUCINATION, AUDITORY [None]
